FAERS Safety Report 5102702-0 (Version None)
Quarter: 2006Q3

REPORT INFORMATION
  Report Type: 
  Country: None (occurrence: None)
  Receive Date: 20060907
  Receipt Date: 20060824
  Transmission Date: 20061208
  Serious: Yes (Hospitalization)
  Sender: FDA-Public Use
  Company Number: DEU-2005-0001445

PATIENT
  Age: 47 Year
  Sex: Male
  Weight: 85 kg

DRUGS (9)
  1. OXYCODONE HCL [Suspect]
     Indication: BACK PAIN
     Dosage: SEE IMAGE
     Route: 048
     Dates: start: 20050425, end: 20050502
  2. OXYCODONE HCL [Suspect]
     Indication: BACK PAIN
     Dosage: SEE IMAGE
     Route: 048
     Dates: start: 20050503, end: 20050513
  3. OXYCODONE HCL [Suspect]
     Indication: BACK PAIN
     Dosage: SEE IMAGE
     Route: 048
     Dates: start: 20050514, end: 20050515
  4. OXYCODONE HCL [Suspect]
     Indication: BACK PAIN
     Dosage: SEE IMAGE
     Route: 048
     Dates: start: 20050516, end: 20050517
  5. OXYCODONE HCL [Suspect]
     Indication: BACK PAIN
     Dosage: SEE TEXT, ORAL
     Route: 048
  6. BUPRENORPHINE HCL [Concomitant]
  7. ASPIRIN [Concomitant]
  8. MOVICOL (MACROGOL, SODIUM CHLORIDE, POTASSIUM CHLORIDE, SODIUM BICARBO [Concomitant]
  9. PANTOZOL (PANTOPRAZOLE SODIUM) [Concomitant]

REACTIONS (4)
  - ABDOMINAL PAIN UPPER [None]
  - DUODENITIS [None]
  - NAUSEA [None]
  - VOMITING [None]
